FAERS Safety Report 6531665-6 (Version None)
Quarter: 2010Q1

REPORT INFORMATION
  Report Type: 
  Country: None (occurrence: None)
  Receive Date: 20100108
  Receipt Date: 20100104
  Transmission Date: 20100710
  Serious: Yes (Other)
  Sender: FDA-Public Use
  Company Number: US-PFIZER INC-2010001930

PATIENT
  Sex: Female
  Weight: 48.526 kg

DRUGS (3)
  1. DILANTIN [Suspect]
     Indication: CONVULSION
     Dosage: 30 MG, 2X/DAY
  2. PHENOBARBITAL [Concomitant]
     Dosage: UNK
  3. ACETYLSALICYLIC ACID [Concomitant]
     Dosage: UNK

REACTIONS (7)
  - ANAEMIA [None]
  - CATARACT [None]
  - DRUG DISPENSING ERROR [None]
  - FALL [None]
  - GAIT DISTURBANCE [None]
  - POSTURE ABNORMAL [None]
  - THINKING ABNORMAL [None]
